FAERS Safety Report 5112827-1 (Version None)
Quarter: 2006Q3

REPORT INFORMATION
  Report Type: 
  Country: None (occurrence: None)
  Receive Date: 20060922
  Receipt Date: 20060804
  Transmission Date: 20061208
  Serious: Yes (Other)
  Sender: FDA-Public Use
  Company Number: IT-BOEHRINGER INGELHEIM GMBH, GERMANY-2006-DE-04168GD

PATIENT

DRUGS (1)
  1. NEVIRAPINE [Suspect]
     Indication: HIV INFECTION

REACTIONS (10)
  - ARTHRALGIA [None]
  - CHOLESTASIS [None]
  - DRUG HYPERSENSITIVITY [None]
  - HEPATOTOXICITY [None]
  - HYPERSENSITIVITY [None]
  - ILL-DEFINED DISORDER [None]
  - MULTI-ORGAN DISORDER [None]
  - MYALGIA [None]
  - PYREXIA [None]
  - RASH [None]
